FAERS Safety Report 24067010 (Version 1)
Quarter: 2024Q3

REPORT INFORMATION
  Report Type: Spontaneous
  Country: US (occurrence: US)
  Receive Date: 20240709
  Receipt Date: 20240709
  Transmission Date: 20241017
  Serious: No
  Sender: VISTAPHARM
  Company Number: US-VISTAPHARM-2023-US-029746

PATIENT
  Age: 84 Year
  Sex: Female
  Weight: 68.95 kg

DRUGS (2)
  1. METOPROLOL [Concomitant]
     Active Substance: METOPROLOL
  2. NYSTATIN [Suspect]
     Active Substance: NYSTATIN
     Indication: Oral candidiasis
     Dosage: TOOK 5 ML TWICE DAILY X 2 DAYS
     Route: 048
     Dates: start: 20230911, end: 20230912

REACTIONS (2)
  - Abdominal discomfort [Recovering/Resolving]
  - Dyspepsia [Recovering/Resolving]

NARRATIVE: CASE EVENT DATE: 20230911
